FAERS Safety Report 9736516 (Version 1)
Quarter: 2013Q4

REPORT INFORMATION
  Report Type: Spontaneous
  Country: NL (occurrence: NL)
  Receive Date: 20131206
  Receipt Date: 20131206
  Transmission Date: 20140711
  Serious: Yes (Life-Threatening, Hospitalization)
  Sender: FDA-Public Use
  Company Number: DE-ASTRAZENECA-2013SE88403

PATIENT
  Sex: Male

DRUGS (8)
  1. OMEPRAZOLE [Suspect]
     Route: 048
  2. GABAPENTIN [Interacting]
     Indication: DIABETIC FOOT
  3. ISOPHANE INSULIN [Interacting]
  4. PREDNISOLONE [Concomitant]
     Route: 047
  5. GRAMICIDIN [Concomitant]
  6. NEOMYCIN SULFATE [Concomitant]
  7. POLYMYXIN B SULFATE [Concomitant]
     Route: 047
  8. ALFUZOSIN [Concomitant]

REACTIONS (5)
  - Drug interaction [Unknown]
  - Hypoglycaemia [Recovered/Resolved]
  - Tremor [Recovered/Resolved]
  - Loss of consciousness [Recovered/Resolved]
  - Coma [Recovered/Resolved]
